FAERS Safety Report 8432134-9 (Version None)
Quarter: 2012Q2

REPORT INFORMATION
  Report Type: 
  Country: None (occurrence: None)
  Receive Date: 20120613
  Receipt Date: 20120606
  Transmission Date: 20120825
  Serious: Yes (Hospitalization, Other)
  Sender: FDA-Public Use
  Company Number: US-CELGENEUS-163-21880-12020232

PATIENT
  Sex: Female

DRUGS (45)
  1. LORTAB [Concomitant]
     Route: 065
  2. APAP #3 [Concomitant]
     Route: 065
  3. VITAMIN D [Concomitant]
     Route: 065
  4. ALLOPURINOL [Concomitant]
     Dosage: 1
     Route: 048
  5. MEXILETINE HYDROCHLORIDE [Concomitant]
     Dosage: 1
     Route: 048
  6. SENOKOT [Concomitant]
     Route: 065
  7. WELLBUTRIN [Concomitant]
     Dosage: 1
     Route: 048
  8. CIPROFLOXACIN [Concomitant]
     Dosage: 1
     Route: 048
  9. DEXAMETHASONE [Concomitant]
     Dosage: 10
     Route: 048
  10. FUROSEMIDE [Concomitant]
     Dosage: 40 MILLIGRAM
     Route: 048
  11. IMDUR [Concomitant]
     Dosage: 1
     Route: 048
  12. ANTIBIOTIC [Concomitant]
     Route: 065
  13. OPINIROLE [Concomitant]
     Dosage: 1
     Route: 048
  14. VITAMIN D [Concomitant]
     Dosage: 2000 UNIT
     Route: 048
  15. ALEGRA [Concomitant]
     Route: 065
  16. CALCIUM + VITAMIN D [Concomitant]
     Route: 065
  17. COLACE [Concomitant]
     Route: 065
  18. CALCIUM CARBONATE [Concomitant]
     Dosage: 2
     Route: 048
  19. OXYCODONE HCL AND ACETAMINOPHEN [Concomitant]
     Indication: PAIN
     Dosage: 10MG/650MG
     Route: 048
  20. FLUOXETINE [Concomitant]
     Dosage: 1
     Route: 048
  21. SPIRIVA [Concomitant]
     Dosage: 1
     Route: 055
  22. MULTI-VITAMINS [Concomitant]
     Dosage: 1
     Route: 048
  23. RAMIPRIL [Concomitant]
     Dosage: 1
     Route: 048
  24. ZOMETA [Concomitant]
     Indication: OSTEOPOROSIS
     Dosage: 1
     Route: 065
  25. REVLIMID [Suspect]
     Indication: MULTIPLE MYELOMA
     Dosage: 15 MILLIGRAM
     Route: 048
     Dates: start: 20081101
  26. LEVOXYL [Concomitant]
     Route: 065
  27. CARVEDILOL [Concomitant]
     Dosage: 1
     Route: 048
  28. NEXIUM [Concomitant]
     Dosage: 1
     Route: 048
  29. ALBUTEROL [Concomitant]
     Dosage: 2 PUFFS
     Route: 055
  30. COREG [Concomitant]
     Route: 065
  31. COUMADIN [Concomitant]
     Dosage: 2.5 MILLIGRAM
     Route: 048
  32. TRAZODONE HCL [Concomitant]
     Dosage: 1
     Route: 048
  33. M.V.I. [Concomitant]
     Route: 065
  34. NITROFURANTOIN [Concomitant]
     Dosage: 50 MILLIGRAM
     Route: 048
  35. ADVAIR DISKUS 100/50 [Concomitant]
     Dosage: 250MCG/50MCG  1 PUFF
     Route: 055
  36. COUMADIN [Concomitant]
     Dosage: 1
     Route: 048
  37. IPRATROPIUM BROMIDE [Concomitant]
     Dosage: 2 PUFFS
     Route: 065
  38. POTASSIUM CHLORIDE [Concomitant]
     Dosage: 1
     Route: 048
  39. SENNA LAX [Concomitant]
     Dosage: 2
     Route: 048
  40. LASIX [Concomitant]
     Route: 065
  41. FEXOFENADINE [Concomitant]
     Dosage: 1
     Route: 048
  42. MAG-OXIDE [Concomitant]
     Dosage: 1.5 TAB
     Route: 048
  43. MS CONTIN [Concomitant]
     Dosage: 45
     Route: 065
  44. SINGULAIR [Concomitant]
     Dosage: 1
     Route: 048
  45. SKELAXIN [Concomitant]
     Dosage: 1
     Route: 048

REACTIONS (2)
  - SPINAL COMPRESSION FRACTURE [None]
  - INTERNATIONAL NORMALISED RATIO INCREASED [None]
